FAERS Safety Report 8326262-6 (Version None)
Quarter: 2012Q2

REPORT INFORMATION
  Report Type: 
  Country: None (occurrence: None)
  Receive Date: 20120427
  Receipt Date: 20120414
  Transmission Date: 20120825
  Serious: Yes (Hospitalization, Other)
  Sender: FDA-Public Use
  Company Number: 2012P1013924

PATIENT
  Age: 54 Year
  Sex: Female
  Weight: 59.8748 kg

DRUGS (5)
  1. FENTANYL-75 [Suspect]
     Indication: BACK PAIN
     Dosage: 1 PATCH;Q72H;TDER
     Route: 062
     Dates: start: 20110101
  2. FENTANYL-100 [Suspect]
     Indication: BACK PAIN
     Dosage: 1 PATCH;Q72H;TDER
     Route: 062
     Dates: end: 20110101
  3. HEART AND BLOOD PRESSURE MEDICATIONS [Concomitant]
  4. FENTANYL [Suspect]
     Indication: BACK PAIN
     Dosage: 1 PATCH;Q72H;TDER
     Route: 062
     Dates: start: 20070101
  5. ASPIRIN [Concomitant]

REACTIONS (8)
  - BLOOD CHOLESTEROL INCREASED [None]
  - CARDIAC DISORDER [None]
  - BLOOD PRESSURE INCREASED [None]
  - HEART RATE INCREASED [None]
  - ARTERIAL OCCLUSIVE DISEASE [None]
  - NAUSEA [None]
  - HEADACHE [None]
  - VASOCONSTRICTION [None]
